FAERS Safety Report 10636012 (Version 1)
Quarter: 2014Q4

REPORT INFORMATION
  Report Type: Spontaneous
  Country: CH (occurrence: CH)
  Receive Date: 20141205
  Receipt Date: 20141205
  Transmission Date: 20150529
  Serious: Yes (Hospitalization)
  Sender: FDA-Public Use
  Company Number: CH-BAYER-2014-175987

PATIENT
  Age: 95 Year
  Sex: Female

DRUGS (6)
  1. ASPIRIN CARDIO [Suspect]
     Active Substance: ASPIRIN
     Dosage: 1100 MG, QD
     Route: 048
     Dates: end: 20141025
  2. DISTRANEURIN [Concomitant]
     Active Substance: CLOMETHIAZOLE
  3. TEMESTA [Concomitant]
     Active Substance: LORAZEPAM
  4. TENORMIN [Concomitant]
     Active Substance: ATENOLOL
     Dosage: 50 MG, UNK
     Route: 048
  5. PANTOZOL [Concomitant]
     Active Substance: PANTOPRAZOLE SODIUM
  6. AMLODIPIN [Concomitant]
     Active Substance: AMLODIPINE BESYLATE

REACTIONS (3)
  - Iron deficiency anaemia [Unknown]
  - Angina pectoris [Recovered/Resolved]
  - Gastrointestinal haemorrhage [Unknown]

NARRATIVE: CASE EVENT DATE: 201410
